FAERS Safety Report 6218899-5 (Version None)
Quarter: 2009Q2

REPORT INFORMATION
  Report Type: 
  Country: None (occurrence: None)
  Receive Date: 20090608
  Receipt Date: 20090526
  Transmission Date: 20091009
  Serious: Yes (Life-Threatening, Hospitalization)
  Sender: FDA-Public Use
  Company Number: IT-MYLANLABS-2009S1009232

PATIENT
  Age: 41 Year
  Sex: Female

DRUGS (1)
  1. ALBUTEROL [Suspect]
     Indication: ASTHMA
     Dosage: INHALED SALBUTAMOL 2G AS A CUMULATIVE DOSE ON THE DAY OF ADMISSION
     Route: 055

REACTIONS (4)
  - ACUTE MYOCARDIAL INFARCTION [None]
  - ARTERIOSPASM CORONARY [None]
  - CORONARY ARTERY STENOSIS [None]
  - HYPOKALAEMIA [None]
